FAERS Safety Report 7928977-8 (Version None)
Quarter: 2011Q4

REPORT INFORMATION
  Report Type: 
  Country: None (occurrence: None)
  Receive Date: 20111118
  Receipt Date: 20111104
  Transmission Date: 20120403
  Serious: Yes (Hospitalization, Other)
  Sender: FDA-Public Use
  Company Number: RU-WATSON-2011-19147

PATIENT
  Age: 20 Year
  Sex: Male

DRUGS (2)
  1. CABERGOLINE [Suspect]
     Indication: PROLACTINOMA
     Dosage: 1 MG, 1/WEEK
  2. CABERGOLINE [Suspect]
     Dosage: 0.5 MG, 1/WEEK

REACTIONS (4)
  - HAEMORRHAGE [None]
  - VISUAL IMPAIRMENT [None]
  - PHARYNGITIS [None]
  - PYREXIA [None]
